FAERS Safety Report 5123712-3 (Version None)
Quarter: 2006Q4

REPORT INFORMATION
  Report Type: 
  Country: None (occurrence: None)
  Receive Date: 20061010
  Receipt Date: 20060927
  Transmission Date: 20070319
  Serious: Yes (Hospitalization)
  Sender: FDA-Public Use
  Company Number: PHHO2006DE16227

PATIENT
  Sex: Female

DRUGS (3)
  1. CYCLOSPORINE [Suspect]
     Indication: RENAL TRANSPLANT
     Dates: start: 20060810, end: 20060917
  2. RAPAMYCIN [Suspect]
     Indication: RENAL TRANSPLANT
     Dates: start: 20060914
  3. STEROIDS NOS [Suspect]
     Indication: RENAL TRANSPLANT
     Dosage: 10 MG/DAY
     Route: 048
     Dates: start: 20060916

REACTIONS (7)
  - ACUTE PULMONARY OEDEMA [None]
  - DYSPNOEA [None]
  - HYPERVOLAEMIA [None]
  - INCISIONAL DRAINAGE [None]
  - RALES [None]
  - SEROMA [None]
  - TACHYCARDIA [None]
